FAERS Safety Report 14963924 (Version 1)
Quarter: 2018Q2

REPORT INFORMATION
  Report Type: Report from Study
  Country: US (occurrence: US)
  Receive Date: 20180601
  Receipt Date: 20180601
  Transmission Date: 20180711
  Serious: Yes (Other)
  Sender: FDA-Public Use
  Company Number: US-IPSEN BIOPHARMACEUTICALS, INC.-2018-04590

PATIENT
  Age: 60 Year
  Sex: Male
  Weight: 59.4 kg

DRUGS (3)
  1. SOMATULINE DEPOT [Suspect]
     Active Substance: LANREOTIDE ACETATE
     Indication: ENDOCRINE NEOPLASM
     Dosage: 120 MG
     Route: 058
     Dates: start: 201706
  2. XARELTO [Concomitant]
     Active Substance: RIVAROXABAN
  3. IRON [Concomitant]
     Active Substance: IRON

REACTIONS (1)
  - Bile duct obstruction [Unknown]

NARRATIVE: CASE EVENT DATE: 20180321
